FAERS Safety Report 7903686-X (Version None)
Quarter: 2011Q4

REPORT INFORMATION
  Report Type: 
  Country: None (occurrence: None)
  Receive Date: 20111027
  Receipt Date: 20110818
  Transmission Date: 20120403
  Serious: Yes (Hospitalization)
  Sender: FDA-Public Use
  Company Number: 2011-2330

PATIENT
  Age: 7 Year
  Sex: Male
  Weight: 20 kg

DRUGS (3)
  1. INSULIN PUMP(INSULIN) [Suspect]
     Indication: DIABETES MELLITUS
  2. INCRELEX [Suspect]
     Indication: INSULIN-LIKE GROWTH FACTOR DECREASED
     Dosage: 48 UNITS (24 UNITS,2 IN 1 D),SUBCUTANEOUS ; 36 UNITS (18 UNITS,2 IN 1 D),SUBCUTANEOUS
     Route: 058
     Dates: start: 20110616, end: 20110707
  3. INCRELEX [Suspect]
     Indication: INSULIN-LIKE GROWTH FACTOR DECREASED
     Dosage: 48 UNITS (24 UNITS,2 IN 1 D),SUBCUTANEOUS ; 36 UNITS (18 UNITS,2 IN 1 D),SUBCUTANEOUS
     Route: 058
     Dates: start: 20110701

REACTIONS (1)
  - CONVULSION [None]
